FAERS Safety Report 4767831-X (Version None)
Quarter: 2005Q3

REPORT INFORMATION
  Report Type: 
  Country: None (occurrence: None)
  Receive Date: 20050912
  Receipt Date: 20050830
  Transmission Date: 20060218
  Serious: Yes (Disabling, Other)
  Sender: FDA-Public Use
  Company Number: 2005122602

PATIENT
  Sex: Male
  Weight: 99.7913 kg

DRUGS (13)
  1. LIPITOR [Suspect]
     Indication: PROPHYLAXIS
     Dosage: 10 MG (10 MG, 1 IN 1 D)
  2. CELEBREX [Suspect]
     Indication: ILL-DEFINED DISORDER
     Dates: start: 19990101
  3. ACCURETIC [Suspect]
     Indication: BLOOD PRESSURE
  4. BEXTRA [Suspect]
     Indication: PAIN
  5. IBUPROFEN [Suspect]
     Indication: BACK PAIN
  6. HYDROCORTISONE ACETATE [Suspect]
     Indication: ILL-DEFINED DISORDER
  7. LANTUS [Concomitant]
  8. CLARITIN-D [Concomitant]
  9. METOCLOPRAMIDE [Concomitant]
  10. HUMALOG [Concomitant]
  11. AMBIEN [Concomitant]
  12. SENNA (SENNA) [Concomitant]
  13. ACETYLSALICYLIC ACID SRT [Concomitant]

REACTIONS (8)
  - ARTHRALGIA [None]
  - BLOOD CHOLESTEROL ABNORMAL [None]
  - CARTILAGE INJURY [None]
  - CONSTIPATION [None]
  - HAEMORRHAGE [None]
  - INSOMNIA [None]
  - PAIN [None]
  - ROAD TRAFFIC ACCIDENT [None]
